FAERS Safety Report 13060639 (Version 1)
Quarter: 2016Q4

REPORT INFORMATION
  Report Type: Report from Study
  Country: JP (occurrence: JP)
  Receive Date: 20161224
  Receipt Date: 20161224
  Transmission Date: 20170207
  Serious: Yes (Death, Life-Threatening)
  Sender: FDA-Public Use
  Company Number: JP-SA-THYM-1004096

PATIENT
  Age: 82 Year
  Sex: Male
  Weight: 53 kg

DRUGS (13)
  1. SOLU-MEDROL [Suspect]
     Active Substance: METHYLPREDNISOLONE SODIUM SUCCINATE
     Indication: PROPHYLAXIS
     Dosage: 250 MG, UNK
     Route: 065
     Dates: start: 20121006, end: 20121010
  2. FLUCONAZOLE. [Concomitant]
     Active Substance: FLUCONAZOLE
     Indication: ANTIFUNGAL PROPHYLAXIS
     Dosage: 100 MG, QD
     Route: 065
     Dates: start: 20121005, end: 20121112
  3. ISCOTIN [Concomitant]
     Active Substance: ISONIAZID
     Indication: ANTIBIOTIC PROPHYLAXIS
     Dosage: 200 MG, QD
     Route: 065
     Dates: start: 20121005, end: 20121112
  4. OMEPRAL [Concomitant]
     Active Substance: OMEPRAZOLE
     Indication: PROPHYLAXIS AGAINST GASTROINTESTINAL ULCER
     Dosage: 10 MG, QD
     Route: 065
     Dates: start: 20121005, end: 20121112
  5. SOLU-MEDROL [Suspect]
     Active Substance: METHYLPREDNISOLONE SODIUM SUCCINATE
     Indication: APLASTIC ANAEMIA
     Dosage: 250 MG, UNK
     Route: 065
     Dates: start: 20121006, end: 20121010
  6. NEUTROGIN [Concomitant]
     Active Substance: LENOGRASTIM
     Indication: APLASTIC ANAEMIA
     Dosage: 250 MCG, UNK
     Route: 065
     Dates: start: 20121010, end: 20121012
  7. NEUTROGIN [Concomitant]
     Active Substance: LENOGRASTIM
     Indication: APLASTIC ANAEMIA
     Dosage: 100 MCG, UNK
     Route: 065
     Dates: start: 20121013, end: 20121112
  8. NEUTROGIN [Concomitant]
     Active Substance: LENOGRASTIM
     Indication: CHRONIC KIDNEY DISEASE
     Dosage: 100 MCG, UNK
     Route: 065
     Dates: start: 20121013, end: 20121112
  9. NEUTROGIN [Concomitant]
     Active Substance: LENOGRASTIM
     Indication: INSOMNIA
     Dosage: 100 MCG, UNK
     Route: 065
     Dates: start: 20121013, end: 20121112
  10. BAKTAR [Concomitant]
     Active Substance: SULFAMETHOXAZOLE\TRIMETHOPRIM
     Indication: ANTIFUNGAL PROPHYLAXIS
     Dosage: 2 TABLETS, PER DAY, TWICE WEEKLY
     Route: 065
     Dates: start: 20121005, end: 20121112
  11. NEUTROGIN [Concomitant]
     Active Substance: LENOGRASTIM
     Indication: CHRONIC KIDNEY DISEASE
     Dosage: 250 MCG, UNK
     Route: 065
     Dates: start: 20121010, end: 20121012
  12. THYMOGLOBULINE [Suspect]
     Active Substance: LAPINE T-LYMPHOCYTE IMMUNE GLOBULIN
     Indication: APLASTIC ANAEMIA
     Dosage: 5 DOSES
     Route: 065
     Dates: start: 20121006, end: 20121010
  13. NEUTROGIN [Concomitant]
     Active Substance: LENOGRASTIM
     Indication: INSOMNIA
     Dosage: 250 MCG, UNK
     Route: 065
     Dates: start: 20121010, end: 20121012

REACTIONS (3)
  - Insomnia [Not Recovered/Not Resolved]
  - Pulmonary haemorrhage [Fatal]
  - Pneumonia [Not Recovered/Not Resolved]

NARRATIVE: CASE EVENT DATE: 20121006
